FAERS Safety Report 9606705 (Version 2)
Quarter: 2013Q4

REPORT INFORMATION
  Report Type: Spontaneous
  Country: US (occurrence: US)
  Receive Date: 20131008
  Receipt Date: 20131008
  Transmission Date: 20140711
  Serious: No
  Sender: FDA-Public Use
  Company Number: US-AMGEN-USASP2013054084

PATIENT
  Age: 70 Year
  Sex: Female
  Weight: 78.01 kg

DRUGS (4)
  1. PROLIA [Suspect]
     Indication: OSTEOPOROSIS
     Dosage: 60 MG, Q6MO
     Route: 058
     Dates: start: 20130219
  2. ASPIRIN [Concomitant]
     Dosage: UNK
  3. TRAMADOL [Concomitant]
     Dosage: UNK
  4. TYLENOL                            /00020001/ [Concomitant]
     Dosage: UNK

REACTIONS (3)
  - Pain in jaw [Recovered/Resolved]
  - Tooth disorder [Unknown]
  - Mastication disorder [Unknown]
